FAERS Safety Report 22674632 (Version 2)
Quarter: 2025Q3

REPORT INFORMATION
  Report Type: Spontaneous
  Country: EU (occurrence: EU)
  Receive Date: 20230705
  Receipt Date: 20250808
  Transmission Date: 20251020
  Serious: Yes (Hospitalization, Other)
  Sender: MYLAN
  Company Number: EU-MYLANLABS-2023M1037504

PATIENT
  Age: 75 Year
  Sex: Male

DRUGS (16)
  1. VENLAFAXINE [Suspect]
     Active Substance: VENLAFAXINE HYDROCHLORIDE
     Indication: Generalised anxiety disorder
  2. VENLAFAXINE [Suspect]
     Active Substance: VENLAFAXINE HYDROCHLORIDE
     Route: 065
  3. VENLAFAXINE [Suspect]
     Active Substance: VENLAFAXINE HYDROCHLORIDE
     Route: 065
  4. VENLAFAXINE [Suspect]
     Active Substance: VENLAFAXINE HYDROCHLORIDE
  5. TRAMADOL [Concomitant]
     Active Substance: TRAMADOL
  6. TRAMADOL [Concomitant]
     Active Substance: TRAMADOL
     Route: 065
  7. TRAMADOL [Concomitant]
     Active Substance: TRAMADOL
     Route: 065
  8. TRAMADOL [Concomitant]
     Active Substance: TRAMADOL
  9. TRAZODONE [Concomitant]
     Active Substance: TRAZODONE HYDROCHLORIDE
  10. TRAZODONE [Concomitant]
     Active Substance: TRAZODONE HYDROCHLORIDE
     Route: 065
  11. TRAZODONE [Concomitant]
     Active Substance: TRAZODONE HYDROCHLORIDE
     Route: 065
  12. TRAZODONE [Concomitant]
     Active Substance: TRAZODONE HYDROCHLORIDE
  13. METAMIZOLE [Concomitant]
     Active Substance: METAMIZOLE
  14. METAMIZOLE [Concomitant]
     Active Substance: METAMIZOLE
     Route: 065
  15. METAMIZOLE [Concomitant]
     Active Substance: METAMIZOLE
     Route: 065
  16. METAMIZOLE [Concomitant]
     Active Substance: METAMIZOLE

REACTIONS (2)
  - Eosinophilic pleural effusion [Recovered/Resolved]
  - Eosinophilia [Recovered/Resolved]
